FAERS Safety Report 10747444 (Version 2)
Quarter: 2015Q2

REPORT INFORMATION
  Report Type: Report from Study
  Country: US (occurrence: None)
  Receive Date: 20150120
  Receipt Date: 20150420
  Transmission Date: 20150821
  Serious: No
  Sender: FDA-Public Use
  Company Number: AEGR000976

PATIENT
  Age: 73 Year
  Sex: Female
  Weight: 91.6 kg

DRUGS (12)
  1. RAMIPRIL. [Concomitant]
     Active Substance: RAMIPRIL
  2. IBANDRONATE (INBANDRONATE SODIUM) [Concomitant]
  3. JUXTAPID [Suspect]
     Active Substance: LOMITAPIDE MESYLATE
     Indication: TYPE IIA HYPERLIPIDAEMIA
     Route: 048
     Dates: start: 20141109
  4. HYDROCHLOROQUINE (HYDROCHLOROQUINE  SULFATE) [Concomitant]
  5. MYRBETRIQ [Concomitant]
     Active Substance: MIRABEGRON
  6. WELCHOL (COLESEVELAM  HYDROCHLORIDE) [Concomitant]
  7. AMLODIPINE (AMLODIPINE BESILATE) [Concomitant]
  8. ZETIA [Concomitant]
     Active Substance: EZETIMIBE
  9. ALENDRONATE (ALENDRONATE SODIUM) [Concomitant]
     Active Substance: ALENDRONATE SODIUM
  10. ACETAZOLAMIDE. [Concomitant]
     Active Substance: ACETAZOLAMIDE
  11. NASONEX [Concomitant]
     Active Substance: MOMETASONE FUROATE
  12. SYNTHROID [Concomitant]
     Active Substance: LEVOTHYROXINE SODIUM

REACTIONS (4)
  - Activities of daily living impaired [None]
  - Diarrhoea [None]
  - Fatigue [None]
  - Influenza [None]

NARRATIVE: CASE EVENT DATE: 201411
